FAERS Safety Report 22134657 (Version 1)
Quarter: 2023Q1

REPORT INFORMATION
  Report Type: Spontaneous
  Country: US (occurrence: None)
  Receive Date: 20230322
  Receipt Date: 20230322
  Transmission Date: 20230417
  Serious: Yes (Other)
  Sender: FDA-Public Use
  Company Number: None

PATIENT
  Age: 43 Year
  Sex: Female

DRUGS (3)
  1. SUNITINIB [Suspect]
     Active Substance: SUNITINIB
     Indication: Mast cell activation syndrome
     Dosage: 12.5MG ONCE DALY BY MOUTH
     Route: 048
     Dates: start: 20230220
  2. COLESTIPOL [Concomitant]
     Active Substance: COLESTIPOL
  3. LORAZEPAM [Concomitant]
     Active Substance: LORAZEPAM

REACTIONS (2)
  - Insomnia [None]
  - Total bile acids increased [None]

NARRATIVE: CASE EVENT DATE: 20230322
